FAERS Safety Report 14891647 (Version 1)
Quarter: 2018Q2

REPORT INFORMATION
  Report Type: Spontaneous
  Country: GB (occurrence: GB)
  Receive Date: 20180514
  Receipt Date: 20180514
  Transmission Date: 20180711
  Serious: Yes (Death, Other)
  Sender: FDA-Public Use
  Company Number: GB-ASTRAZENECA-2018SE61941

PATIENT
  Age: 69 Year
  Sex: Male
  Weight: 79 kg

DRUGS (1)
  1. EXENATIDE. [Suspect]
     Active Substance: EXENATIDE
     Dosage: 10MICROGRAMS/0.04ML
     Route: 065

REACTIONS (1)
  - Pancreatic carcinoma [Fatal]

NARRATIVE: CASE EVENT DATE: 20170624
